FAERS Safety Report 24967172 (Version 1)
Quarter: 2025Q1

REPORT INFORMATION
  Report Type: Report from Study
  Country: US (occurrence: US)
  Receive Date: 20250213
  Receipt Date: 20250213
  Transmission Date: 20250408
  Serious: Yes (Hospitalization)
  Sender: JOHNSON AND JOHNSON
  Company Number: US-JNJFOC-20250217446

PATIENT
  Sex: Female
  Weight: 88.45 kg

DRUGS (4)
  1. VELETRI [Suspect]
     Active Substance: EPOPROSTENOL
     Indication: Pulmonary arterial hypertension
     Route: 042
  2. OPSUMIT [Concomitant]
     Active Substance: MACITENTAN
  3. ADEMPAS [Concomitant]
     Active Substance: RIOCIGUAT
  4. ELIQUIS [Concomitant]
     Active Substance: APIXABAN

REACTIONS (2)
  - Rash [Unknown]
  - Pruritus [Unknown]
